FAERS Safety Report 10171565 (Version 1)
Quarter: 2014Q2

REPORT INFORMATION
  Report Type: Spontaneous
  Country: US (occurrence: None)
  Receive Date: 20140428
  Receipt Date: 20140428
  Transmission Date: 20141212
  Serious: No
  Sender: FDA-Public Use
  Company Number: PHEH2014US000672

PATIENT
  Sex: Female

DRUGS (1)
  1. GILENYA [Suspect]
     Route: 048

REACTIONS (10)
  - Abdominal discomfort [None]
  - Lhermitte^s sign [None]
  - Hypoaesthesia [None]
  - Pain [None]
  - Fatigue [None]
  - Dysphagia [None]
  - Neck pain [None]
  - Balance disorder [None]
  - Back pain [None]
  - Headache [None]
